FAERS Safety Report 21024199 (Version 5)
Quarter: 2022Q4

REPORT INFORMATION
  Report Type: Report from Study
  Country: IL (occurrence: IL)
  Receive Date: 20220629
  Receipt Date: 20221125
  Transmission Date: 20230113
  Serious: Yes (Hospitalization)
  Sender: FDA-Public Use
  Company Number: IL-ABBVIE-22K-082-4386755-00

PATIENT
  Age: 80 Year
  Sex: Female

DRUGS (11)
  1. CARBIDOPA\LEVODOPA [Suspect]
     Active Substance: CARBIDOPA\LEVODOPA
     Indication: Parkinson^s disease
     Dates: start: 20200826
  2. CARBIDOPA\LEVODOPA [Suspect]
     Active Substance: CARBIDOPA\LEVODOPA
     Route: 050
     Dates: start: 20200826
  3. CARBIDOPA\LEVODOPA [Suspect]
     Active Substance: CARBIDOPA\LEVODOPA
     Dosage: MORNING DOSAGE(ML)  8.0; CONTINUOUS DOSAGE (ML/H)  3.9; EXTRA DOSAGE (ML)  1.5
  4. CARBIDOPA\LEVODOPA [Suspect]
     Active Substance: CARBIDOPA\LEVODOPA
     Dosage: MORNING DOSAGE(ML) 8.0; CONTINUOUS DOSAGE (ML/H) 3.9; EXTRA DOSAGE (ML) 1.5
     Route: 050
  5. CARBIDOPA\LEVODOPA [Suspect]
     Active Substance: CARBIDOPA\LEVODOPA
     Dosage: MORNING DOSAGE(ML)  8.0; CONTINUOUS DOSAGE (ML/H) 4.1 ; EXTRA DOSAGE (ML)  1.8
  6. CARBIDOPA\LEVODOPA [Suspect]
     Active Substance: CARBIDOPA\LEVODOPA
     Dosage: MORNING DOSAGE(ML)  8.0; CONTINUOUS DOSAGE (ML/H) 4.1 ; EXTRA DOSAGE (ML)  1.8
     Route: 050
  7. SEROQUEL [Concomitant]
     Active Substance: QUETIAPINE FUMARATE
     Indication: Product used for unknown indication
     Dosage: BEFORE BEDTIME
  8. Laevolac (Lactulose) [Concomitant]
     Indication: Constipation
  9. Laevolac (Lactulose) [Concomitant]
     Indication: Constipation
  10. Laevolac (Lactulose) [Concomitant]
     Indication: Constipation
  11. Lorivan (Lorazepam) [Concomitant]
     Indication: Anxiety

REACTIONS (10)
  - Nervous system disorder [Recovered/Resolved]
  - Intentional device use issue [Not Recovered/Not Resolved]
  - Drug ineffective [Not Recovered/Not Resolved]
  - Pain [Unknown]
  - Constipation [Not Recovered/Not Resolved]
  - Intentional product misuse [Unknown]
  - Hypoaesthesia [Not Recovered/Not Resolved]
  - Restlessness [Unknown]
  - Anxiety [Not Recovered/Not Resolved]
  - On and off phenomenon [Unknown]

NARRATIVE: CASE EVENT DATE: 20221027
